FAERS Safety Report 24967950 (Version 3)
Quarter: 2025Q1

REPORT INFORMATION
  Report Type: Spontaneous
  Country: US (occurrence: US)
  Receive Date: 20250214
  Receipt Date: 20250310
  Transmission Date: 20250409
  Serious: Yes (Death, Hospitalization, Other)
  Sender: BIOGEN
  Company Number: US-BIOGEN-2025BI01300430

PATIENT
  Age: 66 Year
  Sex: Female

DRUGS (1)
  1. QALSODY [Suspect]
     Active Substance: TOFERSEN
     Indication: Amyotrophic lateral sclerosis
     Route: 050
     Dates: start: 20240417, end: 20250115

REACTIONS (4)
  - Death [Fatal]
  - Urinary tract infection [Unknown]
  - Cardiac arrest [Unknown]
  - Hyporesponsive to stimuli [Unknown]

NARRATIVE: CASE EVENT DATE: 20250206
